FAERS Safety Report 5243240-4 (Version None)
Quarter: 2007Q1

REPORT INFORMATION
  Report Type: 
  Country: None (occurrence: None)
  Receive Date: 20070215
  Receipt Date: 20070207
  Transmission Date: 20070707
  Serious: Yes (Other)
  Sender: FDA-Public Use
  Company Number: 2007SP002373

PATIENT
  Age: 8 Year
  Sex: Female

DRUGS (3)
  1. TEMODAL [Suspect]
     Indication: DRUG USE FOR UNKNOWN INDICATION
     Dosage: 75 MG/M2;PO
     Route: 048
  2. CO-TRIMOXAZOLE (CON.) [Concomitant]
  3. THALIDOMIDE (CON.) [Concomitant]

REACTIONS (1)
  - BONE MARROW FAILURE [None]
